FAERS Safety Report 8817763 (Version 2)
Quarter: 2012Q4

REPORT INFORMATION
  Report Type: 
  Country: US (occurrence: US)
  Receive Date: 20121001
  Receipt Date: 20121009
  Transmission Date: 20130627
  Serious: Yes (Hospitalization)
  Sender: FDA-Public Use
  Company Number: US-PFIZER INC-2012240859

PATIENT
  Age: 89 Year
  Sex: Female

DRUGS (1)
  1. PROTONIX [Suspect]
     Dosage: 40 mg, 1x/day
     Route: 048
     Dates: start: 20120216

REACTIONS (1)
  - Clostridium difficile infection [Not Recovered/Not Resolved]
